FAERS Safety Report 13783384 (Version 2)
Quarter: 2017Q3

REPORT INFORMATION
  Report Type: Report from Study
  Country: US (occurrence: US)
  Receive Date: 20170724
  Receipt Date: 20170808
  Transmission Date: 20171127
  Serious: Yes (Hospitalization, Other)
  Sender: FDA-Public Use
  Company Number: US-PFIZER INC-2017109198

PATIENT
  Age: 83 Year
  Sex: Male

DRUGS (2)
  1. SUTENT [Suspect]
     Active Substance: SUNITINIB MALATE
     Indication: GASTROINTESTINAL STROMAL TUMOUR
     Dosage: 50 MG, CYCLIC (REPEATING CYCLE OF 4 WEEKS ON, 2 WEEKS OFF, ONCE DAILY)
     Route: 048
     Dates: start: 20170212, end: 2017
  2. SUTENT [Suspect]
     Active Substance: SUNITINIB MALATE
     Dosage: 50 MG, ONCE DAILY
     Route: 048
     Dates: start: 20170212, end: 2017

REACTIONS (14)
  - Dehydration [Unknown]
  - Mucosal inflammation [Recovering/Resolving]
  - Lip pain [Unknown]
  - Asthenia [Unknown]
  - Hyponatraemia [Unknown]
  - Weight decreased [Not Recovered/Not Resolved]
  - Decreased appetite [Recovering/Resolving]
  - Atrial fibrillation [Unknown]
  - Hypertension [Recovering/Resolving]
  - Diarrhoea [Recovering/Resolving]
  - Dry mouth [Recovering/Resolving]
  - Stomatitis [Recovering/Resolving]
  - Vision blurred [Unknown]
  - Peripheral swelling [Recovering/Resolving]

NARRATIVE: CASE EVENT DATE: 2017
